FAERS Safety Report 7668993-7 (Version None)
Quarter: 2011Q3

REPORT INFORMATION
  Report Type: 
  Country: None (occurrence: None)
  Receive Date: 20110803
  Receipt Date: 20110720
  Transmission Date: 20111222
  Serious: Yes (Hospitalization)
  Sender: FDA-Public Use
  Company Number: AUR-APL-2011-04428

PATIENT
  Age: 75 Year
  Sex: Male

DRUGS (11)
  1. PREDNISOLONE [Suspect]
     Indication: PROSTATE CANCER
     Dosage: 10 MG (5 MG, 2 IN 1 D), ORAL
     Route: 048
     Dates: start: 20080603
  2. DOCETAXEL [Suspect]
     Indication: PROSTATE CANCER
     Dosage: (135 MG, 3 WK), INTRAVENOUS
     Route: 042
     Dates: start: 20080603
  3. METFORMIN HCL [Suspect]
     Indication: TYPE 2 DIABETES MELLITUS
     Dosage: (500 MG), ORAL
     Route: 048
     Dates: start: 20050101
  4. ASPIRIN [Concomitant]
  5. CO-CODAMOL (PANADEINE CO) [Concomitant]
  6. LISINOPRIL [Concomitant]
  7. SIMVASTATIN [Concomitant]
  8. CP-751,871 [Suspect]
     Indication: PROSTATE CANCER
     Dosage: (1440 MG, 3 WK), INTRAVENOUS
     Route: 042
     Dates: start: 20080603
  9. GLICLAZIDE (GLICLAZIDE) [Concomitant]
  10. ALFUZOSIN (ALFUZOSIN) [Concomitant]
  11. FINASTERIDE [Concomitant]

REACTIONS (10)
  - PROSTATE CANCER [None]
  - HAEMOGLOBIN DECREASED [None]
  - NEUTROPENIA [None]
  - COUGH [None]
  - RED BLOOD CELL COUNT DECREASED [None]
  - HAEMATOCRIT DECREASED [None]
  - DRUG LEVEL INCREASED [None]
  - HYPERKALAEMIA [None]
  - DYSPHAGIA [None]
  - RENAL FAILURE ACUTE [None]
